FAERS Safety Report 14407293 (Version 1)
Quarter: 2018Q1

REPORT INFORMATION
  Report Type: Spontaneous
  Country: US (occurrence: US)
  Receive Date: 20180116
  Receipt Date: 20180116
  Transmission Date: 20180509
  Serious: Yes (Disabling)
  Sender: FDA-Public Use
  Company Number: None

PATIENT
  Age: 62 Year
  Sex: Female
  Weight: 54 kg

DRUGS (5)
  1. XANAX [Concomitant]
     Active Substance: ALPRAZOLAM
  2. CIPROFLOXIN [Suspect]
     Active Substance: CIPROFLOXACIN
     Dates: start: 20070310, end: 20120510
  3. MULTI VITE [Concomitant]
  4. VITE D3 [Concomitant]
  5. VTE C [Concomitant]

REACTIONS (6)
  - Hypoaesthesia [None]
  - Fatigue [None]
  - Muscular weakness [None]
  - Anxiety [None]
  - Blood pressure inadequately controlled [None]
  - Neuropathy peripheral [None]
